FAERS Safety Report 18566171 (Version 1)
Quarter: 2020Q4

REPORT INFORMATION
  Report Type: Spontaneous
  Country: HR (occurrence: HR)
  Receive Date: 20201201
  Receipt Date: 20201201
  Transmission Date: 20210114
  Serious: Yes (Other)
  Sender: FDA-Public Use
  Company Number: HR-ELI_LILLY_AND_COMPANY-HR202011008925

PATIENT
  Sex: Male

DRUGS (2)
  1. PACLITAXEL. [Concomitant]
     Active Substance: PACLITAXEL
     Indication: METASTATIC GASTRIC CANCER
  2. CYRAMZA [Suspect]
     Active Substance: RAMUCIRUMAB
     Indication: METASTATIC GASTRIC CANCER
     Dosage: 10 MG/ML
     Route: 065
     Dates: start: 202008

REACTIONS (1)
  - Pneumonitis [Unknown]
